FAERS Safety Report 25524719 (Version 1)
Quarter: 2025Q3

REPORT INFORMATION
  Report Type: Spontaneous
  Country: US (occurrence: None)
  Receive Date: 20250706
  Receipt Date: 20250706
  Transmission Date: 20251021
  Serious: Yes (Disabling)
  Sender: FDA-CTU
  Company Number: None

PATIENT
  Age: 61 Year
  Sex: Female
  Weight: 62.1 kg

DRUGS (7)
  1. ZICAM (HOMEOPATHICS) [Suspect]
     Active Substance: HOMEOPATHICS
     Indication: Prophylaxis
     Route: 050
  2. CRESTOR [Concomitant]
     Active Substance: ROSUVASTATIN CALCIUM
  3. BERBERINE [Concomitant]
     Active Substance: BERBERINE
  4. D3/K2 [Concomitant]
  5. C0Q10 [Concomitant]
  6. FISH OIL [Concomitant]
     Active Substance: FISH OIL
  7. MULTIVITAMIN NUTRAFOL [Concomitant]

REACTIONS (4)
  - Nasal disorder [None]
  - Rhinalgia [None]
  - Sinus pain [None]
  - Headache [None]

NARRATIVE: CASE EVENT DATE: 20250702
